FAERS Safety Report 25682218 (Version 3)
Quarter: 2025Q3

REPORT INFORMATION
  Report Type: Spontaneous
  Country: US (occurrence: US)
  Receive Date: 20250814
  Receipt Date: 20250829
  Transmission Date: 20251020
  Serious: No
  Sender: LEO PHARM
  Company Number: US-LEO Pharma-382081

PATIENT
  Age: 57 Year
  Sex: Female

DRUGS (3)
  1. ADBRY [Suspect]
     Active Substance: TRALOKINUMAB-LDRM
     Indication: Pruritus
     Dosage: TREATMENT IS ONGOING; LOT NUMBER 003E24A, EXP DATE. APR-2027 AND LOT NUMBER 013H24B, EXP DATE AUG-20
     Dates: start: 202504
  2. ADBRY [Suspect]
     Active Substance: TRALOKINUMAB-LDRM
     Indication: Rash
     Dosage: TREATMENT IS ONGOING; LOT NUMBER 003E24A, EXP DATE. APR-2027 AND LOT NUMBER 013H24B, EXP DATE AUG-20
     Dates: start: 202504
  3. ADBRY [Suspect]
     Active Substance: TRALOKINUMAB-LDRM
     Indication: Dermatitis atopic
     Dosage: TREATMENT IS ONGOING; LOT NUMBER 003E24A, EXP DATE. APR-2027 AND LOT NUMBER 013H24B, EXP DATE AUG-20
     Dates: start: 202504

REACTIONS (1)
  - Genital herpes [Not Recovered/Not Resolved]

NARRATIVE: CASE EVENT DATE: 20250728
